FAERS Safety Report 17092252 (Version 1)
Quarter: 2019Q4

REPORT INFORMATION
  Report Type: Spontaneous
  Country: NL (occurrence: NL)
  Receive Date: 20191129
  Receipt Date: 20191129
  Transmission Date: 20200122
  Serious: Yes (Hospitalization)
  Sender: FDA-Public Use
  Company Number: NL-009507513-1911NLD007724

PATIENT
  Age: 52 Year
  Sex: Female

DRUGS (1)
  1. CELESTONE CHRONODOSE [Suspect]
     Active Substance: BETAMETHASONE ACETATE\BETAMETHASONE SODIUM PHOSPHATE
     Indication: ARTHRALGIA
     Dosage: 7 MG, UNK
     Route: 014

REACTIONS (5)
  - Insomnia [Recovering/Resolving]
  - Paranoia [Recovering/Resolving]
  - Psychomotor hyperactivity [Recovering/Resolving]
  - Mania [Recovering/Resolving]
  - Aggression [Recovering/Resolving]
